FAERS Safety Report 22333479 (Version 1)
Quarter: 2023Q2

REPORT INFORMATION
  Report Type: Spontaneous
  Country: US (occurrence: None)
  Receive Date: 20230516
  Receipt Date: 20230516
  Transmission Date: 20230721
  Serious: Yes (Death)
  Sender: FDA-Public Use
  Company Number: None

PATIENT
  Age: 48 Year
  Sex: Female
  Weight: 86.18 kg

DRUGS (16)
  1. MEKINIST [Suspect]
     Active Substance: TRAMETINIB DIMETHYL SULFOXIDE
     Indication: Malignant melanoma
     Dosage: FREQUENCY : DAILY;?
     Route: 048
  2. TAFINLAR [Suspect]
     Active Substance: DABRAFENIB MESYLATE
     Indication: Malignant melanoma
     Dosage: FREQUENCY : TWICE A DAY;?
     Route: 048
  3. ALBUTERFOL HFA [Concomitant]
  4. ALENDRONATE [Concomitant]
     Active Substance: ALENDRONATE SODIUM
  5. CITALOPRAM [Concomitant]
     Active Substance: CITALOPRAM HYDROBROMIDE
  6. CLONAZEPAM [Concomitant]
     Active Substance: CLONAZEPAM
  7. ESTRADIOL [Concomitant]
     Active Substance: ESTRADIOL
  8. FLONASE [Concomitant]
     Active Substance: FLUTICASONE PROPIONATE
  9. FOLIC ACID [Concomitant]
     Active Substance: FOLIC ACID
  10. METHOTREXATE [Concomitant]
     Active Substance: METHOTREXATE
  11. ONDANSETRON [Concomitant]
  12. PREDNISONE [Concomitant]
  13. PROCHLORPERAZINE [Concomitant]
  14. SOMA [Concomitant]
     Active Substance: CARISOPRODOL
  15. VITAMIN B12 [Concomitant]
     Active Substance: CYANOCOBALAMIN
  16. VITAMIN D3 [Concomitant]
     Active Substance: CHOLECALCIFEROL

REACTIONS (1)
  - Death [None]

NARRATIVE: CASE EVENT DATE: 20230516
